FAERS Safety Report 15747701 (Version 1)
Quarter: 2018Q4

REPORT INFORMATION
  Report Type: Spontaneous
  Country: US (occurrence: US)
  Receive Date: 20181220
  Receipt Date: 20181220
  Transmission Date: 20190205
  Serious: No
  Sender: FDA-Public Use
  Company Number: US-LUPIN PHARMACEUTICALS INC.-2018-06691

PATIENT
  Age: 8 Year
  Sex: Male
  Weight: 40.81 kg

DRUGS (3)
  1. DEXMETHYLPHENIDATE HYDROCHLORIDE TABLET, 5 MG [Suspect]
     Active Substance: DEXMETHYLPHENIDATE HYDROCHLORIDE
     Indication: ATTENTION DEFICIT/HYPERACTIVITY DISORDER
     Dosage: 5 MG, QD
     Route: 048
     Dates: start: 201807, end: 201807
  2. DEXMETHYLPHENIDATE HYDROCHLORIDE TABLET, 2.5 MG [Suspect]
     Active Substance: DEXMETHYLPHENIDATE HYDROCHLORIDE
     Indication: ATTENTION DEFICIT/HYPERACTIVITY DISORDER
     Dosage: 2.5 MG, QD
     Route: 048
     Dates: start: 201807, end: 201807
  3. DEXMETHYLPHENIDATE HYDROCHLORIDE TABLET, 5 MG [Suspect]
     Active Substance: DEXMETHYLPHENIDATE HYDROCHLORIDE
     Dosage: 2.5 MG, QD
     Route: 048
     Dates: start: 201808

REACTIONS (4)
  - Headache [Recovered/Resolved]
  - Psychomotor hyperactivity [Recovered/Resolved]
  - Nausea [Recovered/Resolved]
  - Wrong technique in product usage process [Unknown]

NARRATIVE: CASE EVENT DATE: 201807
